FAERS Safety Report 5547066-3 (Version None)
Quarter: 2007Q4

REPORT INFORMATION
  Report Type: 
  Country: None (occurrence: None)
  Receive Date: 20071211
  Receipt Date: 20071204
  Transmission Date: 20080405
  Serious: Yes (Other)
  Sender: FDA-Public Use
  Company Number: US-WYE-H01584607

PATIENT
  Sex: Male
  Weight: 80.5 kg

DRUGS (4)
  1. REFACTO [Suspect]
     Indication: FACTOR VIII DEFICIENCY
     Route: 065
     Dates: start: 20070906, end: 20071026
  2. MAXALT [Concomitant]
     Indication: MIGRAINE
     Route: 065
     Dates: start: 19970101
  3. ACETAMINOPHEN AND OXYCODONE HCL [Concomitant]
     Indication: PAIN
     Dosage: 5 MG AS NEEDED
     Route: 065
  4. METOPROLOL [Concomitant]
     Indication: HYPERTENSION
     Route: 048
     Dates: start: 20070912

REACTIONS (1)
  - FACTOR VIII INHIBITION [None]
